FAERS Safety Report 9725463 (Version 1)
Quarter: 2013Q4

REPORT INFORMATION
  Report Type: Spontaneous
  Country: US (occurrence: None)
  Receive Date: 20131127
  Receipt Date: 20131127
  Transmission Date: 20140711
  Serious: Yes (Life-Threatening, Hospitalization)
  Sender: FDA-Public Use
  Company Number: FK201305081

PATIENT
  Age: 20 Year
  Sex: Female

DRUGS (7)
  1. PROPOFOL [Suspect]
     Indication: SEDATION
  2. PROPOFOL [Suspect]
     Indication: CONVULSION
  3. MIDAZOLAM (MIDAZOLAM) [Concomitant]
  4. PHENYTOIN (PHENYTOIN) [Concomitant]
  5. VALPROIC ACID (VALPROIC ACID) [Concomitant]
  6. CEFTRIAXON (CEFTRIASONE SODIUM) [Concomitant]
  7. VANCOMYCIN (VANCOMYCIN) [Concomitant]

REACTIONS (14)
  - Propofol infusion syndrome [None]
  - Cerebrospinal fluid leakage [None]
  - Shock [None]
  - Metabolic acidosis [None]
  - Renal failure [None]
  - Hyperkalaemia [None]
  - Hypocalcaemia [None]
  - Ventricular tachycardia [None]
  - Pulse absent [None]
  - Cardiac arrest [None]
  - Haemodialysis [None]
  - Embolic stroke [None]
  - Ischaemic stroke [None]
  - Electrocardiogram T wave abnormal [None]
